FAERS Safety Report 7686063-9 (Version None)
Quarter: 2011Q3

REPORT INFORMATION
  Report Type: 
  Country: None (occurrence: None)
  Receive Date: 20110816
  Receipt Date: 20110725
  Transmission Date: 20111222
  Serious: Yes (Other)
  Sender: FDA-Public Use
  Company Number: US-PFIZER INC-2011169038

PATIENT
  Sex: Male
  Weight: 92.971 kg

DRUGS (4)
  1. COLACE [Concomitant]
     Indication: CONSTIPATION
     Dosage: UNK
  2. LIPITOR [Concomitant]
     Dosage: UNK
  3. ALTACE [Suspect]
     Indication: BLOOD PRESSURE ABNORMAL
     Dosage: 2.5 MG, 1X/DAY
     Route: 048
     Dates: end: 20110701
  4. ACETYLSALICYLIC ACID [Concomitant]
     Dosage: ^A QUARTER PART^

REACTIONS (1)
  - BLOOD CREATININE INCREASED [None]
